FAERS Safety Report 5123000-5 (Version None)
Quarter: 2006Q4

REPORT INFORMATION
  Report Type: 
  Country: None (occurrence: None)
  Receive Date: 20061009
  Receipt Date: 20041018
  Transmission Date: 20070319
  Serious: Yes (Disabling)
  Sender: FDA-Public Use
  Company Number: US-GLAXOSMITHKLINE-A0531090A

PATIENT
  Age: 81 Year
  Sex: Male

DRUGS (5)
  1. DEBROX DROPS [Suspect]
     Indication: SINUS DISORDER
     Route: 001
     Dates: start: 19980201
  2. ASPIRIN [Concomitant]
  3. PEPCID [Concomitant]
  4. SERAX [Concomitant]
  5. TYLENOL [Concomitant]

REACTIONS (15)
  - APHONIA [None]
  - BRAIN DAMAGE [None]
  - CONVERSION DISORDER [None]
  - DEAFNESS NEUROSENSORY [None]
  - DEMENTIA [None]
  - DYSPNOEA [None]
  - EAR INJURY [None]
  - EMPTY SELLA SYNDROME [None]
  - INSOMNIA [None]
  - LOSS OF CONSCIOUSNESS [None]
  - NASAL DISORDER [None]
  - NERVE INJURY [None]
  - NUCLEAR MAGNETIC RESONANCE IMAGING BRAIN ABNORMAL [None]
  - SUDDEN HEARING LOSS [None]
  - TINNITUS [None]
